FAERS Safety Report 26116843 (Version 1)
Quarter: 2025Q4

REPORT INFORMATION
  Report Type: Spontaneous
  Country: CA (occurrence: CA)
  Receive Date: 20251203
  Receipt Date: 20251203
  Transmission Date: 20260118
  Serious: Yes (Life-Threatening, Hospitalization, Other)
  Sender: AUROBINDO
  Company Number: CA-AUROBINDO-AUR-APL-2025-060667

PATIENT
  Age: 38 Year
  Sex: Female

DRUGS (1)
  1. HYDRALAZINE [Suspect]
     Active Substance: HYDRALAZINE HYDROCHLORIDE
     Indication: Product used for unknown indication
     Dosage: UNK
     Route: 065

REACTIONS (5)
  - Concomitant disease aggravated [Recovering/Resolving]
  - Fluid retention [Recovering/Resolving]
  - Generalised oedema [Recovering/Resolving]
  - Renal impairment [Recovering/Resolving]
  - Systemic lupus erythematosus [Recovering/Resolving]
